FAERS Safety Report 23905626 (Version 1)
Quarter: 2024Q2

REPORT INFORMATION
  Report Type: Spontaneous
  Country: FR (occurrence: FR)
  Receive Date: 20240527
  Receipt Date: 20240527
  Transmission Date: 20240716
  Serious: Yes (Hospitalization, Other)
  Sender: FDA-Public Use
  Company Number: FR-TAKEDA-73595

PATIENT
  Age: 80 Year
  Sex: Female

DRUGS (22)
  1. INIPOMP [Suspect]
     Active Substance: PANTOPRAZOLE SODIUM
     Dosage: UNK
     Route: 048
     Dates: start: 20061129, end: 20061216
  2. DEXTRAN SULFATE SODIUM\PHENYLBUTAZONE [Suspect]
     Active Substance: DEXTRAN SULFATE SODIUM\PHENYLBUTAZONE
     Indication: Product used for unknown indication
     Dosage: UNK
     Route: 061
     Dates: start: 20061015, end: 20061216
  3. RISPERDAL [Suspect]
     Active Substance: RISPERIDONE
     Dosage: 0.5 MG, 1X/DAY (QD)
     Route: 048
     Dates: start: 20060615, end: 20061216
  4. LOVENOX [Suspect]
     Active Substance: ENOXAPARIN SODIUM
     Dosage: 4000 IU, 1X/DAY, QD
     Route: 058
     Dates: start: 20061129, end: 20061216
  5. SUFENTA [Suspect]
     Active Substance: SUFENTANIL CITRATE
     Dosage: 10 UG
     Route: 042
     Dates: start: 20061129, end: 20061129
  6. ACUPAN [Suspect]
     Active Substance: NEFOPAM HYDROCHLORIDE
     Dosage: 20 MG
     Route: 042
     Dates: start: 20061130, end: 20061216
  7. ACETAMINOPHEN\PROPOXYPHENE HYDROCHLORIDE [Suspect]
     Active Substance: ACETAMINOPHEN\PROPOXYPHENE HYDROCHLORIDE
     Dosage: 430 MG, 3X/DAY (TID)
     Route: 048
     Dates: start: 20061129, end: 20061216
  8. DIPRIVAN [Suspect]
     Active Substance: ISOPROPYL ALCOHOL\PROPOFOL
     Dosage: 100 MILLIGRAM
     Route: 042
     Dates: start: 20061129, end: 20061129
  9. ARICEPT [Suspect]
     Active Substance: DONEPEZIL HYDROCHLORIDE
     Indication: Dementia Alzheimer^s type
     Dosage: 10 MG, 1X/DAY (QD)
     Route: 048
     Dates: start: 20060615, end: 20061216
  10. CHONDROITIN SULFATE (CHICKEN) [Suspect]
     Active Substance: CHONDROITIN SULFATE (CHICKEN)
     Dosage: 3 DF, 1X/DAY (QD)
     Route: 048
     Dates: start: 20060615, end: 20061216
  11. ONDANSETRON [Suspect]
     Active Substance: ONDANSETRON
     Dosage: 2 MG
     Route: 042
     Dates: start: 20061129, end: 20061129
  12. ACETAMINOPHEN [Concomitant]
     Active Substance: ACETAMINOPHEN
     Dosage: UNK
  13. RABEPRAZOLE SODIUM [Concomitant]
     Active Substance: RABEPRAZOLE SODIUM
     Dosage: UNK
     Route: 048
  14. ARIXTRA [Concomitant]
     Active Substance: FONDAPARINUX SODIUM
     Dosage: UNK
     Route: 058
  15. LENOGRASTIM [Concomitant]
     Active Substance: LENOGRASTIM
     Dosage: UNK
  16. TEICOPLANIN [Concomitant]
     Active Substance: TEICOPLANIN
     Dosage: UNK
  17. CEFAMANDOLE [Concomitant]
     Active Substance: CEFAMANDOLE
     Dosage: UNK
  18. CLAVENTIN [AMOXICILLIN SODIUM;CLAVULANATE POTASSIUM] [Concomitant]
     Dosage: UNK
     Route: 042
  19. PRIMPERAN [Concomitant]
     Active Substance: METOCLOPRAMIDE HYDROCHLORIDE
     Dosage: UNK
  20. SUCRALFATE [Concomitant]
     Active Substance: SUCRALFATE
     Dosage: UNK
     Route: 048
  21. DAFALGAN [Concomitant]
     Active Substance: ACETAMINOPHEN
     Dosage: 1 G, 3X/DAY (TID)
     Route: 048
  22. AMIKACIN [Concomitant]
     Active Substance: AMIKACIN
     Indication: Candida infection
     Dosage: UNK
     Route: 065

REACTIONS (2)
  - Agranulocytosis [Recovering/Resolving]
  - Anaemia [Not Recovered/Not Resolved]

NARRATIVE: CASE EVENT DATE: 20061216
